FAERS Safety Report 17813323 (Version 1)
Quarter: 2020Q2

REPORT INFORMATION
  Report Type: Spontaneous
  Country: CO (occurrence: CO)
  Receive Date: 20200521
  Receipt Date: 20200521
  Transmission Date: 20200714
  Serious: Yes (Other)
  Sender: FDA-Public Use
  Company Number: CO-BIOMARINAP-CO-2020-130295

PATIENT
  Age: 13 Year
  Sex: Male
  Weight: 25 kg

DRUGS (2)
  1. IPRATROPIUM BROMIDE AND SALBUTAMOL SULFATE [Concomitant]
     Active Substance: ALBUTEROL SULFATE\IPRATROPIUM BROMIDE
     Indication: PRODUCT USED FOR UNKNOWN INDICATION
  2. NAGLAZYME [Suspect]
     Active Substance: GALSULFASE
     Indication: MUCOPOLYSACCHARIDOSIS VI
     Dosage: UNK
     Route: 065
     Dates: start: 20161018

REACTIONS (5)
  - Spinal cord compression [Unknown]
  - Carpal tunnel syndrome [Unknown]
  - Sleep apnoea syndrome [Unknown]
  - Otorhinolaryngological surgery [Unknown]
  - Hernia repair [Unknown]
